FAERS Safety Report 5521991-1 (Version None)
Quarter: 2007Q4

REPORT INFORMATION
  Report Type: 
  Country: None (occurrence: None)
  Receive Date: 20071120
  Receipt Date: 20070904
  Transmission Date: 20080405
  Serious: No
  Sender: FDA-Public Use
  Company Number: US-BRISTOL-MYERS SQUIBB COMPANY-13897657

PATIENT
  Age: 76 Year
  Sex: Male
  Weight: 75 kg

DRUGS (2)
  1. AVALIDE FILM-COATED/RM TABS 150/12.5MG [Suspect]
     Route: 048
     Dates: start: 20070904
  2. LOPRESSOR [Concomitant]

REACTIONS (1)
  - HEADACHE [None]
